FAERS Safety Report 9478166 (Version 1)
Quarter: 2013Q3

REPORT INFORMATION
  Report Type: Spontaneous
  Country: US (occurrence: US)
  Receive Date: 20130827
  Receipt Date: 20130827
  Transmission Date: 20140515
  Serious: Yes (Other)
  Sender: FDA-Public Use
  Company Number: US-PFIZER INC-2013243424

PATIENT
  Age: 59 Year
  Sex: Female
  Weight: 74.83 kg

DRUGS (1)
  1. VIBRAMYCIN [Suspect]
     Indication: SINUSITIS
     Dosage: UNK
     Route: 048
     Dates: start: 2012, end: 2012

REACTIONS (4)
  - Haemorrhage [Unknown]
  - Vein disorder [Unknown]
  - Varicose vein [Unknown]
  - Weight increased [Unknown]
